FAERS Safety Report 26165690 (Version 1)
Quarter: 2025Q4

REPORT INFORMATION
  Report Type: Spontaneous
  Country: US (occurrence: US)
  Receive Date: 20251216
  Receipt Date: 20251216
  Transmission Date: 20260119
  Serious: No
  Sender: FRESENIUS KABI
  Company Number: US-FreseniusKabi-FK202516570

PATIENT

DRUGS (1)
  1. GENTAMICIN [Suspect]
     Active Substance: GENTAMICIN
     Indication: Product used for unknown indication
     Dosage: INJECTION?40MG/1ML

REACTIONS (1)
  - Drug ineffective [Unknown]
